FAERS Safety Report 10343617 (Version 1)
Quarter: 2014Q3

REPORT INFORMATION
  Report Type: Spontaneous
  Country: FR (occurrence: FR)
  Receive Date: 20140725
  Receipt Date: 20140725
  Transmission Date: 20150326
  Serious: Yes (Hospitalization)
  Sender: FDA-Public Use
  Company Number: FR-GLAXOSMITHKLINE-B1015488A

PATIENT
  Age: 57 Year
  Sex: Male

DRUGS (2)
  1. VOTRIENT [Suspect]
     Active Substance: PAZOPANIB HYDROCHLORIDE
     Indication: SARCOMA METASTATIC
     Dosage: 800MG PER DAY
     Route: 048
     Dates: start: 20140425, end: 20140515
  2. VOTRIENT [Suspect]
     Active Substance: PAZOPANIB HYDROCHLORIDE
     Indication: SARCOMA METASTATIC
     Dosage: 800MG PER DAY
     Route: 048
     Dates: start: 201402, end: 20140402

REACTIONS (6)
  - Gastrointestinal disorder [Unknown]
  - Pain in extremity [Unknown]
  - Hyperkeratosis [Unknown]
  - Ill-defined disorder [Unknown]
  - Pneumothorax [Recovered/Resolved]
  - Pneumothorax [Recovered/Resolved]

NARRATIVE: CASE EVENT DATE: 2014
